FAERS Safety Report 8889135 (Version 3)
Quarter: 2013Q2

REPORT INFORMATION
  Report Type: Spontaneous
  Country: US (occurrence: US)
  Receive Date: 20121106
  Receipt Date: 20130605
  Transmission Date: 20140414
  Serious: Yes (Hospitalization, Other)
  Sender: FDA-Public Use
  Company Number: US-009507513-1205USA01093

PATIENT
  Sex: Female
  Weight: 81.63 kg

DRUGS (4)
  1. FOSAMAX [Suspect]
     Indication: OSTEOPENIA
     Dosage: 70 MG, QW
     Route: 048
     Dates: start: 2004, end: 200504
  2. FOSAMAX [Suspect]
     Dosage: 10 MG, QD
     Route: 048
  3. FOSAMAX PLUS D [Suspect]
     Indication: OSTEOPENIA
     Dosage: 70 MG, QW
     Route: 048
     Dates: start: 200504, end: 2009
  4. LEVOTHROID [Concomitant]
     Indication: HYPOTHYROIDISM
     Dosage: 75 MICROGRAM, QD
     Route: 048
     Dates: start: 1970

REACTIONS (8)
  - Femur fracture [Unknown]
  - Open reduction of fracture [Unknown]
  - Basal cell carcinoma [Unknown]
  - Haemorrhagic anaemia [Unknown]
  - Skin cancer [Unknown]
  - Impaired healing [Unknown]
  - Osteoporosis [Unknown]
  - Infection [Unknown]
